FAERS Safety Report 11749078 (Version 1)
Quarter: 2015Q4

REPORT INFORMATION
  Report Type: Spontaneous
  Country: GB (occurrence: GB)
  Receive Date: 20151118
  Receipt Date: 20151118
  Transmission Date: 20160304
  Serious: Yes (Death, Other)
  Sender: FDA-Public Use
  Company Number: GB-ACCORD-035281

PATIENT
  Age: 55 Year
  Sex: Male

DRUGS (1)
  1. CAPECITABINE. [Suspect]
     Active Substance: CAPECITABINE
     Indication: ADENOCARCINOMA OF COLON
     Route: 048
     Dates: start: 20150911, end: 20150912

REACTIONS (3)
  - Cardiac arrest [Fatal]
  - Myocardial ischaemia [Not Recovered/Not Resolved]
  - Brain injury [Fatal]

NARRATIVE: CASE EVENT DATE: 20150912
